FAERS Safety Report 9278632 (Version 2)
Quarter: 2013Q2

REPORT INFORMATION
  Report Type: Spontaneous
  Country: US (occurrence: US)
  Receive Date: 20130508
  Receipt Date: 20130605
  Transmission Date: 20140414
  Serious: Yes (Other)
  Sender: FDA-Public Use
  Company Number: US-PFIZER INC-2013138442

PATIENT
  Age: 55 Year
  Sex: Female

DRUGS (1)
  1. LEVOXYL [Suspect]
     Indication: HYPOTHYROIDISM
     Dosage: 100 MCG DAILY (PLUS 1/2 TAB 1 DAY OF THE WEEK)
     Route: 048
     Dates: start: 20130421

REACTIONS (5)
  - Uterine leiomyoma [Unknown]
  - Metrorrhagia [Recovering/Resolving]
  - Local swelling [Unknown]
  - Depression [Recovered/Resolved]
  - Fluid retention [Recovered/Resolved]
